FAERS Safety Report 4647690-6 (Version None)
Quarter: 2005Q2

REPORT INFORMATION
  Report Type: 
  Country: None (occurrence: None)
  Receive Date: 20050426
  Receipt Date: 20050412
  Transmission Date: 20051028
  Serious: Yes (Other)
  Sender: FDA-Public Use
  Company Number: 2005058780

PATIENT
  Sex: Female
  Weight: 88.4514 kg

DRUGS (6)
  1. CELEBREX [Suspect]
     Indication: ARTHRALGIA
     Dosage: 200 MG (200 MG, 1 IN 1 D) ORAL
     Route: 048
  2. ALL OTHER THERAPEUTIC PRODUCTS [Concomitant]
  3. ESOMEPRAZOLE [Concomitant]
  4. FEXOFENADINE HYDROCHLORIDE [Concomitant]
  5. EZETIMIBE/SIMVASTATIN [Concomitant]
  6. VALSARTAN [Concomitant]

REACTIONS (4)
  - ARTHRITIS [None]
  - DISEASE RECURRENCE [None]
  - KNEE ARTHROPLASTY [None]
  - WEIGHT INCREASED [None]
